FAERS Safety Report 7891509-7 (Version None)
Quarter: 2011Q4

REPORT INFORMATION
  Report Type: 
  Country: None (occurrence: None)
  Receive Date: 20111103
  Receipt Date: 20110804
  Transmission Date: 20120403
  Serious: No
  Sender: FDA-Public Use
  Company Number: US-AMGEN-USASP2011039596

PATIENT

DRUGS (14)
  1. PROTONIX [Concomitant]
  2. LIDODERM [Concomitant]
  3. CYMBALTA [Concomitant]
  4. TRAVATAN [Concomitant]
  5. ENBREL [Suspect]
     Indication: RHEUMATOID ARTHRITIS
     Dosage: 50 MG, QWK
  6. LEVOTHYROXINE SODIUM [Concomitant]
  7. EPINEPHRINE [Concomitant]
  8. TOPAMAX [Concomitant]
  9. M.V.I. [Concomitant]
  10. MAXALT                             /01406501/ [Concomitant]
  11. LACTULOSE [Concomitant]
  12. VITAMIN D [Concomitant]
  13. SINGULAIR [Concomitant]
  14. SOMA [Concomitant]

REACTIONS (2)
  - INJECTION SITE URTICARIA [None]
  - INJECTION SITE SWELLING [None]
